FAERS Safety Report 8019930-7 (Version None)
Quarter: 2011Q4

REPORT INFORMATION
  Report Type: 
  Country: None (occurrence: None)
  Receive Date: 20111227
  Receipt Date: 20111214
  Transmission Date: 20120403
  Serious: Yes (Hospitalization)
  Sender: FDA-Public Use
  Company Number: 215929

PATIENT
  Sex: Male
  Weight: 80 kg

DRUGS (1)
  1. INNOHEP [Suspect]
     Indication: PRODUCT USED FOR UNKNOWN INDICATION
     Dosage: 4500 IU, SUBCUTANEOUS
     Route: 058
     Dates: start: 20110923, end: 20111022

REACTIONS (3)
  - OFF LABEL USE [None]
  - INCORRECT DRUG ADMINISTRATION DURATION [None]
  - NEEDLE ISSUE [None]
